FAERS Safety Report 4628665-X (Version None)
Quarter: 2005Q2

REPORT INFORMATION
  Report Type: 
  Country: None (occurrence: None)
  Receive Date: 20050406
  Receipt Date: 20050325
  Transmission Date: 20051028
  Serious: Yes (Hospitalization)
  Sender: FDA-Public Use
  Company Number: HQWYE432628MAR05

PATIENT
  Age: 61 Year
  Sex: Male
  Weight: 70 kg

DRUGS (13)
  1. MYLOTARG [Suspect]
     Indication: ACUTE LEUKAEMIA
     Dosage: SEE IMAGE
     Route: 042
     Dates: start: 20050303, end: 20050303
  2. MYLOTARG [Suspect]
     Indication: ACUTE LEUKAEMIA
     Dosage: SEE IMAGE
     Route: 042
     Dates: start: 20050317, end: 20050317
  3. SOLU-CORTEF [Concomitant]
  4. HYDROXYUREA [Concomitant]
  5. ZOFRAN [Concomitant]
  6. VALTREX [Concomitant]
  7. PREVACID [Concomitant]
  8. TUSSIONEX (HYDROCODONE/PHENYLTOLOXAMINE) [Concomitant]
  9. DIPHENHYDRAMINE HCL [Concomitant]
  10. CEFTAZIDIME SODIUM [Concomitant]
  11. LIPITOR [Concomitant]
  12. ATROVENT [Concomitant]
  13. ACETAMINOPHEN [Concomitant]

REACTIONS (3)
  - EMPHYSEMA [None]
  - LUNG INFILTRATION [None]
  - RESPIRATORY DISTRESS [None]
